FAERS Safety Report 8135469 (Version 3)
Quarter: 2013Q2

REPORT INFORMATION
  Report Type: Spontaneous
  Country: US (occurrence: US)
  Receive Date: 20110914
  Receipt Date: 20130517
  Transmission Date: 20140414
  Serious: Yes (Hospitalization, Other)
  Sender: FDA-Public Use
  Company Number: US-ROCHE-791169

PATIENT
  Age: 17 Year
  Sex: Male
  Weight: 40.8 kg

DRUGS (1)
  1. ACCUTANE [Suspect]
     Indication: ACNE CYSTIC
     Route: 065
     Dates: start: 200204, end: 200210

REACTIONS (5)
  - Crohn^s disease [Unknown]
  - Anal abscess [Unknown]
  - Inflammatory bowel disease [Unknown]
  - Anal fistula [Unknown]
  - Blood alkaline phosphatase increased [Unknown]
